FAERS Safety Report 6973581-1 (Version None)
Quarter: 2010Q3

REPORT INFORMATION
  Report Type: 
  Country: None (occurrence: None)
  Receive Date: 20100907
  Receipt Date: 20100819
  Transmission Date: 20110219
  Serious: Yes (Death)
  Sender: FDA-Public Use
  Company Number: APP201000668

PATIENT
  Age: 72 Year
  Sex: Male

DRUGS (4)
  1. METHYLPREDNISOLONE SODIUM SUCCINATE [Suspect]
     Indication: ASTHMA
     Dosage: 1 MG/KG, 3 IN 1 D, INTRAVENOUS; 1 MG/KG, 2 IN 1 D, INTRAVENOUS; 1 MG/KG, 1 IN 1 D, INTRAVENOUS
     Route: 042
  2. METHYLPREDNISOLONE SODIUM SUCCINATE [Suspect]
     Indication: ASTHMA
     Dosage: 1 MG/KG, 3 IN 1 D, INTRAVENOUS; 1 MG/KG, 2 IN 1 D, INTRAVENOUS; 1 MG/KG, 1 IN 1 D, INTRAVENOUS
     Route: 042
  3. METHYLPREDNISOLONE SODIUM SUCCINATE [Suspect]
     Indication: ASTHMA
     Dosage: 1 MG/KG, 3 IN 1 D, INTRAVENOUS; 1 MG/KG, 2 IN 1 D, INTRAVENOUS; 1 MG/KG, 1 IN 1 D, INTRAVENOUS
     Route: 042
  4. PREDNISONE [Concomitant]

REACTIONS (8)
  - ASPERGILLOSIS [None]
  - COLITIS ISCHAEMIC [None]
  - COLON CANCER [None]
  - DEVICE RELATED INFECTION [None]
  - HAEMATOCHEZIA [None]
  - LARGE INTESTINAL ULCER [None]
  - LUNG INFECTION PSEUDOMONAL [None]
  - STAPHYLOCOCCAL BACTERAEMIA [None]
